FAERS Safety Report 11371358 (Version 2)
Quarter: 2015Q3

REPORT INFORMATION
  Report Type: Report from Study
  Country: BR (occurrence: BR)
  Receive Date: 20150812
  Receipt Date: 20150825
  Transmission Date: 20151125
  Serious: Yes (Other)
  Sender: FDA-Public Use
  Company Number: PHHY2015BR096083

PATIENT
  Sex: Female
  Weight: 55 kg

DRUGS (4)
  1. RITALIN LA [Suspect]
     Active Substance: METHYLPHENIDATE HYDROCHLORIDE
     Indication: ATTENTION DEFICIT/HYPERACTIVITY DISORDER
     Dosage: 1 DF (20 MG), QD
     Route: 048
  2. DEPAKOTE [Suspect]
     Active Substance: DIVALPROEX SODIUM
     Dosage: 125 MG, UNK
     Route: 048
  3. DEPAKOTE [Suspect]
     Active Substance: DIVALPROEX SODIUM
     Indication: CONVULSION PROPHYLAXIS
     Dosage: 2 DF, (500 MG) (1 IN MORNING AND 1 AT NIGHT), QD
     Route: 048
  4. RITALIN LA [Suspect]
     Active Substance: METHYLPHENIDATE HYDROCHLORIDE
     Indication: MENTAL RETARDATION
     Dosage: 1 DF (20 MG), QD (RESTARTED APPROXIMATELY 2 WEEKS AGO)
     Route: 048

REACTIONS (2)
  - Noninfective encephalitis [Recovered/Resolved]
  - Seizure [Recovered/Resolved]
